FAERS Safety Report 9577179 (Version 1)
Quarter: 2013Q4

REPORT INFORMATION
  Report Type: Spontaneous
  Country: US (occurrence: US)
  Receive Date: 20131001
  Receipt Date: 20131001
  Transmission Date: 20140711
  Serious: No
  Sender: FDA-Public Use
  Company Number: US-AMGEN-USASP2013006912

PATIENT
  Age: 37 Year
  Sex: Female
  Weight: 94.33 kg

DRUGS (8)
  1. ENBREL [Suspect]
     Indication: RHEUMATOID ARTHRITIS
     Dosage: 50 MG, QWK
     Route: 058
  2. CYMBALTA [Concomitant]
     Dosage: 20 MG, UNK
  3. XANAX [Concomitant]
     Dosage: 0.5 MG, UNK
  4. TOPAMAX [Concomitant]
     Dosage: 25 MG, UNK
  5. DEPAKOTE ER [Concomitant]
     Dosage: 250 MG, UNK
  6. TRAMADOL HCL [Concomitant]
     Dosage: 50 MG, UNK
  7. NADOLOL [Concomitant]
     Dosage: 20 MG, UNK
  8. NAPROXEN SOD [Concomitant]
     Dosage: 220 MG, UNK

REACTIONS (1)
  - Drug ineffective [Unknown]
